FAERS Safety Report 7764333-3 (Version None)
Quarter: 2011Q3

REPORT INFORMATION
  Report Type: 
  Country: None (occurrence: None)
  Receive Date: 20110921
  Receipt Date: 20110919
  Transmission Date: 20111222
  Serious: Yes (Life-Threatening)
  Sender: FDA-Public Use
  Company Number: GB-BRISTOL-MYERS SQUIBB COMPANY-16069338

PATIENT
  Sex: Male

DRUGS (1)
  1. NYSTATIN [Suspect]
     Indication: ORAL CANDIDIASIS
     Dosage: 1DF: 100,000 UNITS/1ML
     Route: 048
     Dates: start: 20110907, end: 20110908

REACTIONS (4)
  - SWELLING FACE [None]
  - OXYGEN SATURATION DECREASED [None]
  - CHEILITIS [None]
  - PHARYNGEAL OEDEMA [None]
